FAERS Safety Report 23631819 (Version 1)
Quarter: 2024Q1

REPORT INFORMATION
  Report Type: Spontaneous
  Country: US (occurrence: US)
  Receive Date: 20240314
  Receipt Date: 20240314
  Transmission Date: 20240409
  Serious: No
  Sender: FDA-Public Use
  Company Number: US-APOTEX-2024AP003257

PATIENT

DRUGS (5)
  1. TEMOZOLOMIDE [Suspect]
     Active Substance: TEMOZOLOMIDE
     Indication: Central nervous system lymphoma
     Dosage: UNK, QD, ON WEEKS 4 AND 8
     Route: 065
  2. TEMOZOLOMIDE [Suspect]
     Active Substance: TEMOZOLOMIDE
     Dosage: 200 MILLIGRAM/SQ. METER, QD, 5 DAYS EVERY 28 DAYS, FOR TOTAL 10 CYCLES
     Route: 065
  3. METHOTREXATE [Concomitant]
     Active Substance: METHOTREXATE
     Indication: Central nervous system lymphoma
     Dosage: 5 CYCLES OF 3.5 GRAM PER METER SQUARE (G/M2)
     Route: 065
  4. RITUXIMAB [Concomitant]
     Active Substance: RITUXIMAB
     Indication: Central nervous system lymphoma
     Dosage: 375-500 MILLIGRAM PER METER SQUARE (MG/M2)
     Route: 065
  5. LEUCOVORIN [Concomitant]
     Active Substance: LEUCOVORIN\LEUCOVORIN CALCIUM
     Indication: Central nervous system lymphoma
     Dosage: UNK, ON WEEKS 1, 3, 5, 7 AND 9
     Route: 065

REACTIONS (1)
  - Adverse drug reaction [Unknown]
